FAERS Safety Report 6905904-3 (Version None)
Quarter: 2010Q3

REPORT INFORMATION
  Report Type: 
  Country: None (occurrence: None)
  Receive Date: 20100804
  Receipt Date: 20100727
  Transmission Date: 20110219
  Serious: Yes (Other)
  Sender: FDA-Public Use
  Company Number: US-ROCHE-717948

PATIENT
  Sex: Male

DRUGS (3)
  1. PEGASYS [Suspect]
     Indication: HEPATITIS C
     Route: 065
     Dates: start: 20100101, end: 20100515
  2. RIBAVIRIN [Suspect]
     Indication: HEPATITIS C
     Route: 048
     Dates: start: 20090801, end: 20100101
  3. RIBAVIRIN [Suspect]
     Route: 048
     Dates: start: 20100101, end: 20100515

REACTIONS (3)
  - CONVULSION [None]
  - MEMORY IMPAIRMENT [None]
  - SUICIDAL IDEATION [None]
